FAERS Safety Report 8319006-5 (Version None)
Quarter: 2012Q2

REPORT INFORMATION
  Report Type: 
  Country: None (occurrence: None)
  Receive Date: 20120427
  Receipt Date: 20120425
  Transmission Date: 20120825
  Serious: Yes (Death, Other)
  Sender: FDA-Public Use
  Company Number: US-JNJFOC-20120202492

PATIENT
  Sex: Female
  Weight: 81.65 kg

DRUGS (2)
  1. XARELTO [Suspect]
     Indication: THROMBOSIS PROPHYLAXIS
     Dosage: RECOMMENDED DOSE
     Route: 048
     Dates: start: 20120118, end: 20120125
  2. PREDNISONE TAB [Concomitant]

REACTIONS (11)
  - OESOPHAGEAL STENOSIS [None]
  - PNEUMONIA ASPIRATION [None]
  - HAEMATOMA INFECTION [None]
  - OCCULT BLOOD POSITIVE [None]
  - POST PROCEDURAL HAEMATOMA [None]
  - POST PROCEDURAL COMPLICATION [None]
  - URINARY TRACT INFECTION [None]
  - CONFUSIONAL STATE [None]
  - FALL [None]
  - ANXIETY [None]
  - DRUG HYPERSENSITIVITY [None]
